FAERS Safety Report 6555646-1 (Version None)
Quarter: 2010Q1

REPORT INFORMATION
  Report Type: 
  Country: None (occurrence: None)
  Receive Date: 20100128
  Receipt Date: 20100114
  Transmission Date: 20100710
  Serious: Yes (Other)
  Sender: FDA-Public Use
  Company Number: PHEH2008US06051

PATIENT
  Sex: Female

DRUGS (20)
  1. ESTRADERM [Suspect]
     Dosage: UNK
     Route: 062
     Dates: start: 19940509, end: 19940804
  2. PROVERA [Suspect]
     Dosage: 2.5 MG, UNK
     Dates: start: 19940509, end: 19951001
  3. PROVERA [Suspect]
     Dosage: UNK
     Dates: start: 19970513, end: 19991101
  4. PREMARIN [Suspect]
     Dosage: UNK
     Dates: start: 19940804, end: 19951001
  5. PREMPRO [Suspect]
     Dosage: UNK
     Dates: start: 19951001, end: 19970513
  6. ESTRACE [Suspect]
     Dosage: UNK
     Dates: start: 19970513, end: 19991101
  7. ARIMIDEX [Concomitant]
     Dosage: 1 MG BY MOUTH DAILY
  8. ALBUTEROL [Concomitant]
     Dosage: UNK
  9. COZAAR [Concomitant]
     Dosage: INHALER AS NEEDED
  10. FUROSEMIDE [Concomitant]
     Dosage: UNK
  11. SINGULAIR [Concomitant]
     Dosage: UNK
  12. SYMBICORT [Concomitant]
     Dosage: UNK
  13. POTASSIUM CHLORIDE [Concomitant]
     Dosage: 20 MEQ / DAILY
  14. ZELNORM                                 /USA/ [Concomitant]
     Dosage: UNK
  15. LASIX [Concomitant]
     Dosage: 40 MG / DAILY
  16. ASPIRIN [Concomitant]
     Dosage: 325 MG / DAILY
  17. WELLBUTRIN [Concomitant]
     Dosage: UNK
  18. ZOLOFT [Concomitant]
     Dosage: UNK
  19. ESTRACE [Concomitant]
     Indication: BREAST TENDERNESS
     Dosage: 1 MG, UNK
  20. PROVENTIL [Concomitant]

REACTIONS (49)
  - ABDOMINAL DISTENSION [None]
  - ABDOMINAL PAIN [None]
  - ANOGENITAL WARTS [None]
  - ANXIETY [None]
  - ASTHMA [None]
  - ASTHMA EXERCISE INDUCED [None]
  - BIOPSY ENDOMETRIUM [None]
  - BREAST CANCER [None]
  - BREAST LUMP REMOVAL [None]
  - BREAST SWELLING [None]
  - CERVICAL DYSPLASIA [None]
  - CHRONIC OBSTRUCTIVE PULMONARY DISEASE [None]
  - COLONIC POLYP [None]
  - CONSTIPATION [None]
  - DEATH OF COMPANION [None]
  - DEPRESSION [None]
  - DERMATITIS [None]
  - DIARRHOEA [None]
  - DIVERTICULUM [None]
  - DYSPEPSIA [None]
  - DYSPNOEA [None]
  - GALLBLADDER OPERATION [None]
  - GASTROENTERITIS [None]
  - GASTROOESOPHAGEAL REFLUX DISEASE [None]
  - HAEMATOCHEZIA [None]
  - HAND FRACTURE [None]
  - HYPERTENSION [None]
  - INCISION SITE COMPLICATION [None]
  - IRRITABLE BOWEL SYNDROME [None]
  - LOCALISED OEDEMA [None]
  - MALIGNANT BREAST LUMP REMOVAL [None]
  - MASTITIS [None]
  - MELAENA [None]
  - NAUSEA [None]
  - OBESITY [None]
  - OEDEMA PERIPHERAL [None]
  - OESTROGEN RECEPTOR ASSAY POSITIVE [None]
  - OSTEOPENIA [None]
  - PAIN [None]
  - POLYP [None]
  - PROGESTERONE RECEPTOR ASSAY POSITIVE [None]
  - STRESS [None]
  - SURGERY [None]
  - TRANSIENT ISCHAEMIC ATTACK [None]
  - UTERINE LEIOMYOMA [None]
  - VAGINAL HAEMORRHAGE [None]
  - VITAMIN D DEFICIENCY [None]
  - VOMITING [None]
  - WEIGHT INCREASED [None]
